FAERS Safety Report 20065218 (Version 2)
Quarter: 2021Q4

REPORT INFORMATION
  Report Type: Report from Study
  Country: US (occurrence: US)
  Receive Date: 20211113
  Receipt Date: 20211215
  Transmission Date: 20220303
  Serious: Yes (Death, Hospitalization, Other)
  Sender: FDA-Public Use
  Company Number: US-GILEAD-2021-0555669

PATIENT
  Age: 53 Year
  Sex: Female
  Weight: 98.413 kg

DRUGS (4)
  1. SOFOSBUVIR\VELPATASVIR [Suspect]
     Active Substance: SOFOSBUVIR\VELPATASVIR
     Indication: Chronic hepatitis C
     Dosage: 1 DOSAGE FORM, QD
     Route: 048
     Dates: start: 20210930, end: 20211012
  2. FAMOTIDINE [Concomitant]
     Active Substance: FAMOTIDINE
  3. METRONIDAZOLE [Concomitant]
     Active Substance: METRONIDAZOLE
  4. PROPRANOLOL [Concomitant]
     Active Substance: PROPRANOLOL HYDROCHLORIDE

REACTIONS (2)
  - Diffuse large B-cell lymphoma [Unknown]
  - Death [Fatal]

NARRATIVE: CASE EVENT DATE: 20211012
